FAERS Safety Report 9671007 (Version 1)
Quarter: 2013Q4

REPORT INFORMATION
  Report Type: Spontaneous
  Country: US (occurrence: None)
  Receive Date: 20131105
  Receipt Date: 20131105
  Transmission Date: 20140711
  Serious: No
  Sender: FDA-Public Use
  Company Number: None

PATIENT
  Age: 42 Year
  Sex: Female
  Weight: 52.16 kg

DRUGS (1)
  1. ALBUTEROL [Suspect]
     Indication: BRONCHITIS
     Dosage: 25 COUNT PACKAGES
     Route: 055

REACTIONS (2)
  - Chest pain [None]
  - Device occlusion [None]
